FAERS Safety Report 7366174-8 (Version None)
Quarter: 2011Q1

REPORT INFORMATION
  Report Type: 
  Country: None (occurrence: None)
  Receive Date: 20110225
  Receipt Date: 20101214
  Transmission Date: 20110831
  Serious: No
  Sender: FDA-Public Use
  Company Number: 320107

PATIENT
  Age: 53 Year
  Sex: Female

DRUGS (1)
  1. VICTOZA [Suspect]
     Indication: INSULIN RESISTANT DIABETES
     Dosage: SUBCUTANEOUS
     Route: 058

REACTIONS (10)
  - HEADACHE [None]
  - MOOD SWINGS [None]
  - BLOOD GLUCOSE INCREASED [None]
  - HYPERPHAGIA [None]
  - DRUG INEFFECTIVE [None]
  - CONSTIPATION [None]
  - MALAISE [None]
  - DECREASED APPETITE [None]
  - NAUSEA [None]
  - BLOOD GLUCOSE DECREASED [None]
